FAERS Safety Report 7028083-3 (Version None)
Quarter: 2010Q3

REPORT INFORMATION
  Report Type: 
  Country: None (occurrence: None)
  Receive Date: 20100930
  Receipt Date: 20100923
  Transmission Date: 20110219
  Serious: Yes (Hospitalization, Other)
  Sender: FDA-Public Use
  Company Number: 2010SP004922

PATIENT
  Age: 27 Year
  Sex: Female
  Weight: 52.1637 kg

DRUGS (2)
  1. NUVARING [Suspect]
     Indication: CONTRACEPTION
     Dates: start: 20030101, end: 20060101
  2. IBUPROFEN [Concomitant]

REACTIONS (4)
  - ACCIDENT [None]
  - COMPLICATION OF DEVICE REMOVAL [None]
  - DEEP VEIN THROMBOSIS [None]
  - INJURY [None]
